FAERS Safety Report 11574384 (Version 1)
Quarter: 2015Q3

REPORT INFORMATION
  Report Type: Spontaneous
  Country: GB (occurrence: GB)
  Receive Date: 20150930
  Receipt Date: 20150930
  Transmission Date: 20151125
  Serious: Yes (Other)
  Sender: FDA-Public Use
  Company Number: GB-ACCORD-033942

PATIENT
  Age: 89 Year
  Sex: Female
  Weight: 80 kg

DRUGS (10)
  1. PARACETAMOL [Concomitant]
     Active Substance: ACETAMINOPHEN
     Dosage: TAKE 1 OR 2
     Dates: start: 20110228
  2. RAMIPRIL. [Suspect]
     Active Substance: RAMIPRIL
     Indication: PRODUCT USED FOR UNKNOWN INDICATION
     Dates: start: 20150727
  3. CANDESARTAN [Concomitant]
     Active Substance: CANDESARTAN
     Dates: start: 20150611, end: 20150618
  4. CO-AMILOFRUSE [Concomitant]
     Active Substance: AMILORIDE\FUROSEMIDE
     Dosage: IN THE MORNING
     Dates: start: 20130902, end: 20150626
  5. NAPROXEN. [Concomitant]
     Active Substance: NAPROXEN
     Dates: start: 20150826, end: 20150902
  6. DICLOFENAC [Concomitant]
     Active Substance: DICLOFENAC
     Dates: start: 20150727, end: 20150802
  7. NITROFURANTOIN/NITROFURANTOIN SODIUM [Concomitant]
     Dates: start: 20150826, end: 20150902
  8. BUPRENORPHINE/BUPRENORPHINE HYDROCHLORIDE [Concomitant]
     Dosage: APPLY ONE AS DIRECTED
     Dates: start: 20150706, end: 20150720
  9. IRON [Concomitant]
     Active Substance: IRON
     Dates: start: 20090803
  10. LACTULOSE. [Concomitant]
     Active Substance: LACTULOSE
     Dates: start: 20080925

REACTIONS (1)
  - Ageusia [Unknown]

NARRATIVE: CASE EVENT DATE: 20150910
